FAERS Safety Report 8964860 (Version 1)
Quarter: 2012Q4

REPORT INFORMATION
  Report Type: 
  Country: US (occurrence: US)
  Receive Date: 20121214
  Receipt Date: 20121214
  Transmission Date: 20130627
  Serious: No
  Sender: FDA-Public Use
  Company Number: US-ASTRAZENECA-2012SE90487

PATIENT
  Age: 61 Year
  Sex: Female
  Weight: 72.6 kg

DRUGS (10)
  1. NEXIUM [Suspect]
     Indication: GASTROOESOPHAGEAL REFLUX DISEASE
     Route: 048
     Dates: start: 2012
  2. NEXIUM [Suspect]
     Indication: GASTROOESOPHAGEAL REFLUX DISEASE
     Route: 048
     Dates: start: 2012
  3. OMEPRAZOLE [Suspect]
     Indication: GASTROOESOPHAGEAL REFLUX DISEASE
     Route: 048
  4. GABAPENTIN [Concomitant]
     Indication: NEURALGIA
  5. XYZAL [Concomitant]
     Indication: HYPERSENSITIVITY
  6. WELBUTRIN [Concomitant]
     Indication: POST-TRAUMATIC STRESS DISORDER
  7. PROZAC [Concomitant]
     Indication: POST-TRAUMATIC STRESS DISORDER
  8. XANAX XR [Concomitant]
     Indication: POST-TRAUMATIC STRESS DISORDER
  9. AMBIEN [Concomitant]
     Indication: SLEEP DISORDER
  10. VITAMIN D [Concomitant]
     Indication: SUPPLEMENTATION THERAPY

REACTIONS (6)
  - Hiatus hernia [Unknown]
  - Feeling abnormal [Unknown]
  - Rash [Unknown]
  - Diarrhoea [Unknown]
  - Vomiting [Unknown]
  - Off label use [Unknown]
